FAERS Safety Report 4436812-8 (Version None)
Quarter: 2004Q3

REPORT INFORMATION
  Report Type: 
  Country: None (occurrence: None)
  Receive Date: 20040728
  Receipt Date: 20040421
  Transmission Date: 20050211
  Serious: No
  Sender: FDA-Public Use
  Company Number: TOS-000628

PATIENT
  Age: 52 Year
  Sex: Female
  Weight: 83.2 kg

DRUGS (4)
  1. TOSITUMOMAB, IODINE I 131 TOSITUMOMAB, IODINE I 131 TOSITUMOMAB) STERI [Suspect]
     Indication: NON-HODGKIN'S LYMPHOMA
     Dosage: TOSITUMOMAB 450 MG, INTRAVENOUS
     Route: 042
     Dates: start: 20040420, end: 20040420
  2. TOSITUMOMAB, IODINE I 131 TOSITUMOMAB, IODINE I 131 TOSITUMOMAB) STERI [Suspect]
     Indication: NON-HODGKIN'S LYMPHOMA
     Dosage: TOSITUMOMAB 450 MG, INTRAVENOUS
     Route: 042
     Dates: start: 20040420, end: 20040420
  3. TOSITUMOMAB, IODINE I 131 TOSITUMOMAB, IODINE I 131 TOSITUMOMAB) STERI [Suspect]
     Indication: NON-HODGKIN'S LYMPHOMA
     Dosage: TOSITUMOMAB 450 MG, INTRAVENOUS
     Route: 042
     Dates: start: 20040428, end: 20040428
  4. TOSITUMOMAB, IODINE I 131 TOSITUMOMAB, IODINE I 131 TOSITUMOMAB) STERI [Suspect]
     Indication: NON-HODGKIN'S LYMPHOMA
     Dosage: TOSITUMOMAB 450 MG, INTRAVENOUS
     Route: 042
     Dates: start: 20040428, end: 20040428

REACTIONS (3)
  - BACK PAIN [None]
  - HEADACHE [None]
  - HYPOTENSION [None]
